FAERS Safety Report 22395222 (Version 2)
Quarter: 2023Q2

REPORT INFORMATION
  Report Type: Spontaneous
  Country: US (occurrence: US)
  Receive Date: 20230601
  Receipt Date: 20230612
  Transmission Date: 20230721
  Serious: Yes (Hospitalization, Other)
  Sender: FDA-Public Use
  Company Number: US-TEVA-2023-US-2891099

PATIENT
  Age: 6 Month
  Sex: Female

DRUGS (39)
  1. CARBAMAZEPINE [Suspect]
     Active Substance: CARBAMAZEPINE
     Indication: Status epilepticus
     Route: 065
  2. CARBAMAZEPINE [Suspect]
     Active Substance: CARBAMAZEPINE
     Indication: Tonic convulsion
  3. CARBAMAZEPINE [Suspect]
     Active Substance: CARBAMAZEPINE
     Indication: Generalised tonic-clonic seizure
  4. LAMOTRIGINE [Suspect]
     Active Substance: LAMOTRIGINE
     Indication: Status epilepticus
     Route: 065
  5. LAMOTRIGINE [Suspect]
     Active Substance: LAMOTRIGINE
     Indication: Tonic convulsion
  6. LAMOTRIGINE [Suspect]
     Active Substance: LAMOTRIGINE
     Indication: Generalised tonic-clonic seizure
  7. PHENYTOIN [Suspect]
     Active Substance: PHENYTOIN
     Indication: Status epilepticus
     Route: 065
  8. PHENYTOIN [Suspect]
     Active Substance: PHENYTOIN
     Indication: Tonic convulsion
  9. PHENYTOIN [Suspect]
     Active Substance: PHENYTOIN
     Indication: Generalised tonic-clonic seizure
  10. TOPIRAMATE [Suspect]
     Active Substance: TOPIRAMATE
     Indication: Status epilepticus
     Route: 065
  11. LEVETIRACETAM [Suspect]
     Active Substance: LEVETIRACETAM
     Indication: Status epilepticus
     Dosage: 1000 MILLIGRAM DAILY; IN THE MORNING , ONCE A DAY
     Route: 065
  12. LEVETIRACETAM [Suspect]
     Active Substance: LEVETIRACETAM
     Dosage: 1500 MILLIGRAM DAILY; IN THE EVENING , ONCE A DAY
     Route: 065
  13. LEVOCARNITINE [Suspect]
     Active Substance: LEVOCARNITINE
     Indication: Status epilepticus
     Dosage: 1200 MILLIGRAM DAILY; 600 MG TWICE A DAY
     Route: 065
  14. VALPROIC ACID [Suspect]
     Active Substance: VALPROIC ACID
     Indication: Status epilepticus
     Route: 065
  15. PROPOFOL [Suspect]
     Active Substance: PROPOFOL
     Indication: Status epilepticus
     Route: 065
  16. PROPOFOL [Suspect]
     Active Substance: PROPOFOL
     Dosage: 100 MICROG/KG/MIN
     Route: 041
  17. VALPROATE [Suspect]
     Active Substance: VALPROIC ACID
     Indication: Status epilepticus
     Dosage: 2000 MILLIGRAM DAILY; 1000MG TWICE DAILY
     Route: 065
  18. PHENOBARBITAL [Suspect]
     Active Substance: PHENOBARBITAL
     Indication: Status epilepticus
     Route: 065
  19. PHENOBARBITAL [Suspect]
     Active Substance: PHENOBARBITAL
     Indication: Tonic convulsion
  20. PHENOBARBITAL [Suspect]
     Active Substance: PHENOBARBITAL
     Indication: Generalised tonic-clonic seizure
  21. CANNABIDIOL [Suspect]
     Active Substance: CANNABIDIOL
     Indication: Status epilepticus
     Dosage: OIL
     Route: 065
  22. FELBAMATE [Suspect]
     Active Substance: FELBAMATE
     Indication: Status epilepticus
     Route: 065
  23. FELBAMATE [Suspect]
     Active Substance: FELBAMATE
     Dosage: 1800 MILLIGRAM DAILY; 600 MG THRICE DAILY
     Route: 065
  24. STIRIPENTOL [Suspect]
     Active Substance: STIRIPENTOL
     Indication: Status epilepticus
     Route: 065
  25. CLOBAZAM [Suspect]
     Active Substance: CLOBAZAM
     Indication: Status epilepticus
     Route: 065
  26. CLOBAZAM [Suspect]
     Active Substance: CLOBAZAM
     Dosage: 20 MILLIGRAM DAILY; 10 MG TWICE A DAY
     Route: 065
  27. CLOBAZAM [Suspect]
     Active Substance: CLOBAZAM
     Dosage: 30 MILLIGRAM DAILY;
     Route: 065
  28. MIDAZOLAM [Suspect]
     Active Substance: MIDAZOLAM
     Indication: Status epilepticus
     Route: 065
  29. MIDAZOLAM [Suspect]
     Active Substance: MIDAZOLAM
     Route: 065
  30. KETAMINE [Suspect]
     Active Substance: KETAMINE
     Indication: Status epilepticus
     Route: 065
  31. KETAMINE [Suspect]
     Active Substance: KETAMINE
     Dosage: BOLUS
     Route: 065
  32. KETAMINE [Suspect]
     Active Substance: KETAMINE
     Route: 065
  33. KETAMINE [Suspect]
     Active Substance: KETAMINE
     Route: 065
  34. LORAZEPAM [Suspect]
     Active Substance: LORAZEPAM
     Indication: Status epilepticus
     Dosage: 4 MG
     Route: 042
  35. PENTOBARBITAL [Suspect]
     Active Substance: PENTOBARBITAL
     Indication: Status epilepticus
     Dosage: 2.5 MG/KG/HR
     Route: 065
  36. EPIDIOLEX [Suspect]
     Active Substance: CANNABIDIOL
     Indication: Status epilepticus
     Dosage: 10 MG/KG DAILY; ONCE A DAY
     Route: 065
  37. EPIDIOLEX [Suspect]
     Active Substance: CANNABIDIOL
     Dosage: 10 MG/KG DAILY;
     Route: 065
  38. FENFLURAMINE [Suspect]
     Active Substance: FENFLURAMINE
     Indication: Status epilepticus
     Dosage: 18.4 MILLIGRAM DAILY; ONCE A DAY
     Route: 050
  39. FENFLURAMINE [Suspect]
     Active Substance: FENFLURAMINE
     Indication: Severe myoclonic epilepsy of infancy
     Dosage: 32.2 MILLIGRAM DAILY; 16.1 MG TWICE A DAY
     Route: 050

REACTIONS (6)
  - Condition aggravated [Unknown]
  - Seizure [Unknown]
  - Drooling [Unknown]
  - Propofol infusion syndrome [Unknown]
  - Overdose [Unknown]
  - Drug ineffective [Unknown]
